FAERS Safety Report 10036358 (Version 2)
Quarter: 2014Q1

REPORT INFORMATION
  Report Type: Spontaneous
  Country: RU (occurrence: RU)
  Receive Date: 20140325
  Receipt Date: 20140327
  Transmission Date: 20141002
  Serious: Yes (Other)
  Sender: FDA-Public Use
  Company Number: RU-009507513-1403RUS007075

PATIENT
  Sex: Male
  Weight: 86 kg

DRUGS (6)
  1. VICTRELIS [Suspect]
     Dosage: UNK
     Route: 048
     Dates: start: 20130606
  2. PEGASYS [Suspect]
     Dosage: UNK
     Dates: start: 20130506
  3. ETHAMSYLATE [Concomitant]
     Dosage: PERIODICALLY
  4. MENADIONE SODIUM BISULFITE [Concomitant]
     Dosage: PERIODICALLY
  5. PHOSPHOGLIV [Concomitant]
     Dosage: PERIODICALLY
  6. REBETOL [Suspect]
     Dosage: 6 DF, QD
     Route: 048
     Dates: start: 20130506

REACTIONS (2)
  - Haematochezia [Recovered/Resolved]
  - Pancytopenia [Unknown]
